FAERS Safety Report 5737200-4 (Version None)
Quarter: 2008Q2

REPORT INFORMATION
  Report Type: 
  Country: None (occurrence: None)
  Receive Date: 20080512
  Receipt Date: 20080512
  Transmission Date: 20081010
  Serious: Yes (Other)
  Sender: FDA-Public Use
  Company Number: None

PATIENT
  Sex: Female
  Weight: 81.1939 kg

DRUGS (2)
  1. BACLOFEN [Suspect]
     Indication: MUSCLE SPASTICITY
     Dosage: 10 MG - 2 TABLETS 3 X DAILY ORAL
     Route: 048
     Dates: start: 20071128, end: 20071204
  2. BACLOFEN [Suspect]
     Indication: MUSCLE SPASTICITY
     Dosage: 20 MG - 1 TABLET 3 X DAILY ORAL
     Route: 048
     Dates: start: 20080418, end: 20080424

REACTIONS (2)
  - DRUG INEFFECTIVE [None]
  - PHARMACEUTICAL PRODUCT COMPLAINT [None]
